FAERS Safety Report 6275838-9 (Version None)
Quarter: 2009Q3

REPORT INFORMATION
  Report Type: 
  Country: None (occurrence: None)
  Receive Date: 20090717
  Receipt Date: 20090709
  Transmission Date: 20100115
  Serious: Yes (Disabling)
  Sender: FDA-Public Use
  Company Number: ADR7102009

PATIENT
  Age: 35 Year
  Sex: Female

DRUGS (3)
  1. SIMVASTATIN [Suspect]
     Indication: HYPERCHOLESTEROLAEMIA
     Dosage: 40 MG/DAY ORAL
     Route: 048
     Dates: start: 20041018, end: 20081212
  2. SIMVASTATIN [Suspect]
  3. LEVONOVA (LEVONORGESTREL) [Concomitant]

REACTIONS (2)
  - DRUG EFFECT DECREASED [None]
  - URTICARIA THERMAL [None]
